FAERS Safety Report 13510992 (Version 1)
Quarter: 2017Q2

REPORT INFORMATION
  Report Type: Other
  Country: ES (occurrence: ES)
  Receive Date: 20170503
  Receipt Date: 20170503
  Transmission Date: 20170830
  Serious: Yes (Other)
  Sender: FDA-Public Use
  Company Number: ES-SYMPLMED PHARMACEUTICALS-2017SYMPLMED000443

PATIENT

DRUGS (2)
  1. VIACORAM [Suspect]
     Active Substance: AMLODIPINE BESYLATE\PERINDOPRIL ARGININE
     Indication: OFF LABEL USE
  2. VIACORAM [Suspect]
     Active Substance: AMLODIPINE BESYLATE\PERINDOPRIL ARGININE
     Indication: RENAL FAILURE
     Dosage: 1 (7MG/5MG) TABLET, QD
     Route: 048
     Dates: start: 20170321, end: 20170330

REACTIONS (2)
  - Cough [Not Recovered/Not Resolved]
  - Gout [Not Recovered/Not Resolved]

NARRATIVE: CASE EVENT DATE: 20170323
